FAERS Safety Report 18258731 (Version 2)
Quarter: 2020Q4

REPORT INFORMATION
  Report Type: Spontaneous
  Country: US (occurrence: US)
  Receive Date: 20200911
  Receipt Date: 20201117
  Transmission Date: 20210113
  Serious: Yes (Other)
  Sender: FDA-Public Use
  Company Number: US-EDGE PHARMA LLC-2089672

PATIENT
  Age: 53 Year
  Sex: Male

DRUGS (1)
  1. TREE MIX ALLERGEN EXTRACTS [Suspect]
     Active Substance: ALLERGENIC EXTRACT- TREE
     Indication: IMMUNE TOLERANCE INDUCTION
     Route: 058
     Dates: start: 20200828, end: 20200828

REACTIONS (1)
  - No adverse event [None]

NARRATIVE: CASE EVENT DATE: 20200828
